FAERS Safety Report 5496843-6 (Version None)
Quarter: 2007Q4

REPORT INFORMATION
  Report Type: 
  Country: None (occurrence: None)
  Receive Date: 20071025
  Receipt Date: 20071003
  Transmission Date: 20080405
  Serious: No
  Sender: FDA-Public Use
  Company Number: A0676638A

PATIENT
  Age: 76 Year
  Sex: Female

DRUGS (5)
  1. ADVAIR DISKUS 100/50 [Suspect]
     Dosage: 1PUFF PER DAY
     Route: 055
     Dates: start: 20040501
  2. XOPENEX [Concomitant]
  3. ZIAC [Concomitant]
  4. SYNTHROID [Concomitant]
  5. ADVIL [Concomitant]

REACTIONS (3)
  - DRUG INEFFECTIVE [None]
  - DYSKINESIA [None]
  - PHARMACEUTICAL PRODUCT COMPLAINT [None]
